FAERS Safety Report 5511643-6 (Version None)
Quarter: 2007Q4

REPORT INFORMATION
  Report Type: 
  Country: None (occurrence: None)
  Receive Date: 20071109
  Receipt Date: 20071030
  Transmission Date: 20080405
  Serious: No
  Sender: FDA-Public Use
  Company Number: CZ-BAXTER-2007BH008768

PATIENT
  Age: 38 Year
  Sex: Female

DRUGS (1)
  1. GAMMAGARD S/D [Suspect]
     Indication: IMMUNODEFICIENCY COMMON VARIABLE
     Dosage: DOSE UNIT:UNKNOWN
     Route: 042

REACTIONS (1)
  - ANAPHYLACTOID REACTION [None]
